FAERS Safety Report 11139704 (Version 1)
Quarter: 2015Q2

REPORT INFORMATION
  Report Type: Spontaneous
  Country: US (occurrence: None)
  Receive Date: 20150526
  Receipt Date: 20150526
  Transmission Date: 20150821
  Serious: Yes (Other)
  Sender: FDA-Public Use
  Company Number: None

PATIENT
  Age: 54 Month
  Sex: Female
  Weight: 90.27 kg

DRUGS (1)
  1. ATENOLOL 25 MG [Suspect]
     Active Substance: ATENOLOL
     Indication: HYPERTENSION
     Dosage: 1 PER DAY ONCE DAILY TAKEN BY MOUTH
     Route: 048
     Dates: start: 20141101, end: 20150410

REACTIONS (1)
  - Alopecia [None]

NARRATIVE: CASE EVENT DATE: 20141101
